FAERS Safety Report 10706938 (Version 3)
Quarter: 2015Q1

REPORT INFORMATION
  Report Type: Spontaneous
  Country: US (occurrence: US)
  Receive Date: 20150113
  Receipt Date: 20150206
  Transmission Date: 20150721
  Serious: Yes (Hospitalization, Other)
  Sender: FDA-Public Use
  Company Number: US-PFIZER INC-2015008266

PATIENT
  Age: 43 Year
  Sex: Male

DRUGS (6)
  1. ZOLPIDEM TARTRATE. [Suspect]
     Active Substance: ZOLPIDEM TARTRATE
     Indication: INSOMNIA
     Dosage: 10MG 1/2-1 TAB AT BEDTIME AS NEEDED
     Route: 048
     Dates: start: 20140926, end: 20141003
  2. FETZIMA [Suspect]
     Active Substance: LEVOMILNACIPRAN HYDROCHLORIDE
     Indication: DEPRESSION
     Dosage: 20 MG, DAILY
     Route: 048
     Dates: start: 20140926, end: 20140927
  3. XANAX [Suspect]
     Active Substance: ALPRAZOLAM
     Dosage: 8 TABLETS OF 0.5 MG
     Route: 048
     Dates: start: 20141004, end: 20141004
  4. ZOLPIDEM TARTRATE. [Suspect]
     Active Substance: ZOLPIDEM TARTRATE
     Dosage: APPROXIMATELY 23X10MG TABLETS
     Route: 048
     Dates: start: 20141004, end: 20141004
  5. XANAX [Suspect]
     Active Substance: ALPRAZOLAM
     Indication: NERVOUSNESS
     Dosage: 0.5MG 1 TAB EVERY 8 HOURS AS NEEDED
     Route: 048
     Dates: start: 20140926, end: 20141003
  6. FETZIMA [Suspect]
     Active Substance: LEVOMILNACIPRAN HYDROCHLORIDE
     Dosage: 40 MG, DAILY
     Route: 048
     Dates: start: 20140928, end: 20141006

REACTIONS (2)
  - Intentional overdose [Recovering/Resolving]
  - Suicide attempt [Recovering/Resolving]

NARRATIVE: CASE EVENT DATE: 20141004
